FAERS Safety Report 6007646-8 (Version None)
Quarter: 2008Q4

REPORT INFORMATION
  Report Type: 
  Country: None (occurrence: None)
  Receive Date: 20081217
  Receipt Date: 20080326
  Transmission Date: 20090506
  Serious: No
  Sender: FDA-Public Use
  Company Number: US-ASTRAZENECA-2008UW06144

PATIENT
  Age: 68 Year
  Sex: Female
  Weight: 100.2 kg

DRUGS (4)
  1. CRESTOR [Suspect]
     Indication: BLOOD CHOLESTEROL INCREASED
     Route: 048
  2. DIGOXIN [Concomitant]
  3. ZOLOFT [Concomitant]
  4. VITAMIN [Concomitant]

REACTIONS (3)
  - DYSURIA [None]
  - OEDEMA PERIPHERAL [None]
  - WEIGHT INCREASED [None]
